FAERS Safety Report 7799657-7 (Version None)
Quarter: 2011Q4

REPORT INFORMATION
  Report Type: 
  Country: None (occurrence: None)
  Receive Date: 20111006
  Receipt Date: 20110928
  Transmission Date: 20120403
  Serious: Yes (Death, Life-Threatening, Hospitalization, Other)
  Sender: FDA-Public Use
  Company Number: DE-CELGENEUS-062-21880-11051864

PATIENT
  Age: 46 Year
  Sex: Male
  Weight: 71 kg

DRUGS (20)
  1. BUDENOFALK [Concomitant]
     Dosage: 6 MILLIGRAM
     Route: 065
  2. REVLIMID [Suspect]
     Indication: MULTIPLE MYELOMA
     Dosage: AFTER DIALYSIS
     Route: 048
     Dates: start: 20101209, end: 20101215
  3. CREON [Concomitant]
     Dosage: 75000 IU (INTERNATIONAL UNIT)
     Route: 065
  4. DEXAMETHASONE [Concomitant]
     Route: 065
  5. AZITHROMYCIN [Concomitant]
     Dosage: 1000 MILLIGRAM
     Route: 065
  6. NOVALGIN [Concomitant]
     Indication: PAIN
     Dosage: 80
     Route: 065
  7. ACYCLOVIR [Concomitant]
     Dosage: 200 MILLIGRAM
     Route: 065
  8. AMLODIPINE [Concomitant]
     Dosage: 5 MILLIGRAM
     Route: 065
  9. ARANESP [Concomitant]
     Route: 065
  10. FLUVASTATIN SODIUM [Concomitant]
     Dosage: 40 MILLIGRAM
     Route: 065
  11. FUROSEMIDE [Concomitant]
     Dosage: 160 MILLIGRAM
     Route: 065
  12. NOXAFIL [Concomitant]
     Dosage: 15 MILLILITER
     Route: 065
  13. PALLADONE [Concomitant]
     Route: 065
  14. AVELOX [Concomitant]
     Dosage: 400 MILLIGRAM
     Route: 065
  15. EINSALPHA [Concomitant]
     Dosage: .25 MICROGRAM
     Route: 065
  16. MAGNESIUM VERLA [Concomitant]
     Route: 065
  17. PANTOPRAZOLE [Concomitant]
     Dosage: 40 MILLIGRAM
     Route: 065
  18. BISOPROLOL [Concomitant]
     Dosage: 5MG AND 2.5MG
     Route: 065
  19. ENOXAPARIN SODIUM [Concomitant]
     Indication: DIALYSIS
     Dosage: .4 MILLILITER
     Route: 058
  20. HYDROCORTISONE [Concomitant]
     Dosage: 10 MILLIGRAM
     Route: 065

REACTIONS (5)
  - ACUTE GRAFT VERSUS HOST DISEASE IN SKIN [None]
  - BRONCHOPULMONARY ASPERGILLOSIS [None]
  - INFECTION [None]
  - GENERAL PHYSICAL HEALTH DETERIORATION [None]
  - BACTERIAL INFECTION [None]
